FAERS Safety Report 8474728-0 (Version None)
Quarter: 2012Q2

REPORT INFORMATION
  Report Type: 
  Country: None (occurrence: None)
  Receive Date: 20120621
  Receipt Date: 20120613
  Transmission Date: 20120825
  Serious: Yes (Congenital Anomaly, Other)
  Sender: FDA-Public Use
  Company Number: AUR-APL-2012-02650

PATIENT
  Age: 0 Year
  Sex: Female
  Weight: 3 kg

DRUGS (4)
  1. FOLIC ACID [Concomitant]
  2. LEVOTHYROXINE SODIUM [Concomitant]
  3. LAMOTRIGINE [Suspect]
     Indication: EPILEPSY
     Dosage: (650 MG, 300MG-0-350MG), TRANSPLACENTAL
     Route: 064
     Dates: start: 20110409, end: 20120113
  4. LAMOTRIGINE [Suspect]
     Indication: EXPOSURE DURING BREAST FEEDING
     Dosage: (650 MG, 300MG-0-350MG), TRANSPLACENTAL
     Route: 064
     Dates: start: 20110409, end: 20120113

REACTIONS (6)
  - POOR WEIGHT GAIN NEONATAL [None]
  - SOMNOLENCE [None]
  - EXPOSURE DURING BREAST FEEDING [None]
  - ANKYLOGLOSSIA CONGENITAL [None]
  - ARTHROPATHY [None]
  - MATERNAL DRUGS AFFECTING FOETUS [None]
